FAERS Safety Report 8989780 (Version 2)
Quarter: 2019Q4

REPORT INFORMATION
  Report Type: Spontaneous
  Country: US (occurrence: US)
  Receive Date: 20121228
  Receipt Date: 20191219
  Transmission Date: 20200122
  Serious: Yes (Other)
  Sender: FDA-Public Use
  Company Number: US-UCBSA-073867

PATIENT
  Sex: Female

DRUGS (1)
  1. CIMZIA [Suspect]
     Active Substance: CERTOLIZUMAB PEGOL
     Indication: RHEUMATOID ARTHRITIS
     Dosage: DOSE: 2 SHOTS
     Dates: start: 2012

REACTIONS (7)
  - Tonsillar disorder [Not Recovered/Not Resolved]
  - Oropharyngeal pain [Not Recovered/Not Resolved]
  - Drug ineffective [Unknown]
  - Oral herpes [Recovering/Resolving]
  - Sinus congestion [Not Recovered/Not Resolved]
  - Headache [Not Recovered/Not Resolved]
  - Acne cystic [Unknown]

NARRATIVE: CASE EVENT DATE: 2012
